FAERS Safety Report 16438873 (Version 1)
Quarter: 2019Q2

REPORT INFORMATION
  Report Type: Spontaneous
  Country: US (occurrence: US)
  Receive Date: 20190617
  Receipt Date: 20190617
  Transmission Date: 20190711
  Serious: Yes (Hospitalization)
  Sender: FDA-Public Use
  Company Number: US-EISAI MEDICAL RESEARCH-EC-2019-057681

PATIENT
  Age: 71 Year
  Sex: Male

DRUGS (1)
  1. LENVIMA [Suspect]
     Active Substance: LENVATINIB
     Indication: THYROID CANCER METASTATIC
     Dosage: DOSE AND FREQUENCY UNKNOWN
     Route: 048
     Dates: start: 20181020, end: 20190304

REACTIONS (1)
  - Gastrointestinal ulcer perforation [Recovered/Resolved]

NARRATIVE: CASE EVENT DATE: 20190304
